FAERS Safety Report 6312628-2 (Version None)
Quarter: 2009Q3

REPORT INFORMATION
  Report Type: 
  Country: None (occurrence: None)
  Receive Date: 20090814
  Receipt Date: 20090804
  Transmission Date: 20100115
  Serious: Yes (Other)
  Sender: FDA-Public Use
  Company Number: MC200900283

PATIENT
  Age: 76 Year
  Sex: Female

DRUGS (2)
  1. ANGIOMAX, ANGIOX (BIVALIRUDIN) INJECTION [Suspect]
     Indication: PERCUTANEOUS CORONARY INTERVENTION
     Dates: start: 20090101, end: 20090101
  2. PLAVIX [Suspect]
     Dosage: 600 MG, LOADING DOSE
     Dates: start: 20090101, end: 20090101

REACTIONS (3)
  - ABDOMINAL WALL HAEMATOMA [None]
  - MUSCLE RUPTURE [None]
  - POST PROCEDURAL HAEMATOMA [None]
